FAERS Safety Report 7450770-3 (Version None)
Quarter: 2011Q2

REPORT INFORMATION
  Report Type: 
  Country: None (occurrence: None)
  Receive Date: 20110502
  Receipt Date: 20110428
  Transmission Date: 20111010
  Serious: Yes (Hospitalization)
  Sender: FDA-Public Use
  Company Number: NO-AMGEN-NORSP2011002135

PATIENT
  Age: 80 Year
  Sex: Female

DRUGS (6)
  1. CALCIUM [Concomitant]
     Route: 048
  2. GLUCOSAMIN                         /00943601/ [Concomitant]
     Route: 048
  3. METHOTREXATE [Concomitant]
     Indication: RHEUMATOID ARTHRITIS
     Dosage: UNK UNK, QWK
     Route: 048
     Dates: start: 20101209
  4. NEXIUM [Concomitant]
     Route: 048
  5. PROLIA [Suspect]
     Indication: PRODUCT USED FOR UNKNOWN INDICATION
     Dosage: UNK
     Dates: start: 20110104
  6. VITAMIN A [Concomitant]
     Route: 048

REACTIONS (3)
  - ERYSIPELAS [None]
  - EYE DISORDER [None]
  - CONJUNCTIVITIS [None]
